FAERS Safety Report 9811848 (Version 2)
Quarter: 2014Q1

REPORT INFORMATION
  Report Type: Spontaneous
  Country: US (occurrence: US)
  Receive Date: 20140110
  Receipt Date: 20140131
  Transmission Date: 20141002
  Serious: Yes (Death)
  Sender: FDA-Public Use
  Company Number: US-ASTRAZENECA-2014SE01206

PATIENT
  Age: 19756 Day
  Sex: Male
  Weight: 74.8 kg

DRUGS (5)
  1. SYMBICORT [Suspect]
     Indication: ASTHMA
     Dosage: 160/4.5, 2 PUFFS, BID
     Route: 055
     Dates: start: 2008
  2. ALBUTEROL [Concomitant]
     Indication: OCCUPATIONAL ASTHMA
     Dosage: 2 - 4 PUFFS PRN
     Dates: start: 20131218
  3. AUGMENTIN [Concomitant]
     Indication: COUGH
     Dosage: BID
     Dates: start: 20131227
  4. PREDNISONE [Concomitant]
     Indication: ASTHMA
     Route: 048
     Dates: start: 20131218, end: 20131228
  5. REGLAN [Concomitant]

REACTIONS (2)
  - Dyspnoea [Fatal]
  - Respiratory disorder [Fatal]
